FAERS Safety Report 7915385-9 (Version None)
Quarter: 2011Q4

REPORT INFORMATION
  Report Type: 
  Country: None (occurrence: None)
  Receive Date: 20111115
  Receipt Date: 20111109
  Transmission Date: 20120403
  Serious: Yes (Other)
  Sender: FDA-Public Use
  Company Number: PHHY2011CA85383

PATIENT
  Sex: Female

DRUGS (5)
  1. PANTOPRAZOLE SODIUM [Concomitant]
     Dosage: UNK UKN, UNK
     Route: 042
  2. ZOLEDRONOC ACID [Suspect]
     Indication: OSTEOPOROSIS
     Dosage: UNK UKN, UNK
     Route: 042
     Dates: start: 20100819
  3. ESTRACE [Concomitant]
     Dosage: UNK UKN, UNK
  4. D TABS [Concomitant]
     Dosage: UNK UKN, UNK
  5. ADVAIR DISKUS 100/50 [Concomitant]
     Dosage: UNK UKN, UNK

REACTIONS (4)
  - MYALGIA [None]
  - PYREXIA [None]
  - MIGRAINE [None]
  - NAUSEA [None]
